FAERS Safety Report 9355493 (Version 1)
Quarter: 2013Q2

REPORT INFORMATION
  Report Type: Spontaneous
  Country: US (occurrence: None)
  Receive Date: 20130618
  Receipt Date: 20130618
  Transmission Date: 20140414
  Serious: No
  Sender: FDA-Public Use
  Company Number: None

PATIENT
  Age: 70 Year
  Sex: Male

DRUGS (1)
  1. APOKYN [Suspect]
     Indication: PARKINSON^S DISEASE
     Dosage: 5 TIMES A DAY.
     Route: 058
     Dates: start: 20070306

REACTIONS (5)
  - Hyperhidrosis [None]
  - Vomiting [None]
  - Dizziness [None]
  - Nausea [None]
  - Fall [None]
